FAERS Safety Report 7501197-7 (Version None)
Quarter: 2011Q2

REPORT INFORMATION
  Report Type: 
  Country: None (occurrence: None)
  Receive Date: 20110524
  Receipt Date: 20110428
  Transmission Date: 20111010
  Serious: Yes (Hospitalization)
  Sender: FDA-Public Use
  Company Number: US-UCBSA-030900

PATIENT
  Sex: Female
  Weight: 54.8 kg

DRUGS (23)
  1. AMBIEN [Concomitant]
     Indication: INSOMNIA
     Dosage: 1 TABLET AT BED TIME
     Route: 048
  2. OMEPRAZOLE [Concomitant]
     Dosage: 40 MG, 1 TABLET A DAY
  3. AMITRIPTYLINE HCL [Concomitant]
     Dosage: 2 AT BEDTIME
     Route: 048
  4. MULTI-VITAMINS [Concomitant]
     Dosage: ONCE A DAY
  5. PAXIL [Concomitant]
     Dosage: 40 MG, EVERY MORNING
     Route: 048
  6. CIMZIA [Suspect]
     Route: 058
     Dates: start: 20110428
  7. ATARAX [Concomitant]
     Indication: PRURITUS
     Dosage: 25 MG. 1 TO 2 TABLETS EVERY 6 HOURS AS NEEDED
  8. ATENOLOL [Concomitant]
     Route: 048
  9. LIPITOR [Concomitant]
     Dosage: 10 MG
     Route: 048
  10. CIMZIA [Suspect]
     Indication: RHEUMATOID ARTHRITIS
     Route: 058
     Dates: start: 20100503
  11. AMBIEN [Concomitant]
     Indication: ANXIETY
     Dosage: 1 TABLET AT BED TIME
     Route: 048
  12. ATIVAN [Concomitant]
     Indication: ANXIETY
     Dosage: 0.5 MG ONE OR TWO ONCE A DAY AS NEEDED
  13. EFFIENT [Concomitant]
     Route: 048
  14. LISINOPRIL [Concomitant]
     Route: 048
  15. CALCIUM CARBONATE [Concomitant]
     Dosage: 600 MG, 2-3 DAILY
  16. DRITHO-CREME HP 1% [Concomitant]
     Dosage: APPLY TWICE A DAY
  17. ATIVAN [Concomitant]
     Indication: PANIC DISORDER WITH AGORAPHOBIA
     Dosage: 0.5 MG ONE OR TWO ONCE A DAY AS NEEDED
  18. NITROGLYCERIN [Concomitant]
     Indication: CHEST PAIN
     Dosage: 0.4 MG, EVERY 5MIN X 3 AS NEEDED
     Route: 060
  19. LISINOPRIL [Concomitant]
     Dosage: 10 MG, 1 TABLET BY MOUTH DAILY
     Route: 048
  20. ASPIRIN [Concomitant]
     Dosage: 81 MG, 1 TABLET BY MOUTH EVERY MORNING
     Route: 048
  21. ATENOLOL [Concomitant]
  22. PLAQUENIL [Concomitant]
     Dosage: 200 MG TWO PILLS DAILY
  23. CHANTIX [Concomitant]
     Dosage: 1 MG

REACTIONS (3)
  - MYOCARDIAL INFARCTION [None]
  - DIZZINESS [None]
  - VASCULAR PSEUDOANEURYSM [None]
